FAERS Safety Report 6837381 (Version 2)
Quarter: 2013Q1

REPORT INFORMATION
  Report Type: Spontaneous
  Country: US (occurrence: US)
  Receive Date: 20081208
  Receipt Date: 20130129
  Transmission Date: 20140127
  Serious: Yes (Other)
  Sender: FDA-Public Use
  Company Number: US-AMGEN-KDL306315

PATIENT
  Age: 67 Year
  Sex: Female

DRUGS (3)
  1. ENBREL [Suspect]
     Indication: RHEUMATOID ARTHRITIS
     Dosage: UNK UNK, UNK
     Dates: start: 20010101
  2. ENBREL [Suspect]
     Indication: OSTEOARTHRITIS
     Dates: start: 20010101
  3. SULFASALAZINE [Concomitant]
     Dosage: 500 MG, QID

REACTIONS (5)
  - Cataract [Recovered/Resolved]
  - Osteoarthritis [Unknown]
  - Trigger finger [Not Recovered/Not Resolved]
  - Intervertebral disc degeneration [Not Recovered/Not Resolved]
  - Device malfunction [Unknown]
